FAERS Safety Report 8473386-9 (Version None)
Quarter: 2012Q2

REPORT INFORMATION
  Report Type: 
  Country: None (occurrence: None)
  Receive Date: 20120628
  Receipt Date: 20120621
  Transmission Date: 20120825
  Serious: Yes (Other)
  Sender: FDA-Public Use
  Company Number: US-BIOGENIDEC-2012BI009661

PATIENT
  Sex: Male

DRUGS (1)
  1. AVONEX [Suspect]
     Indication: PRODUCT USED FOR UNKNOWN INDICATION
     Route: 030
     Dates: start: 20060101, end: 20070101

REACTIONS (4)
  - INFLUENZA LIKE ILLNESS [None]
  - SKIN REACTION [None]
  - MUSCLE SPASMS [None]
  - CONVULSION [None]
